FAERS Safety Report 8047799-3 (Version None)
Quarter: 2012Q1

REPORT INFORMATION
  Report Type: 
  Country: None (occurrence: None)
  Receive Date: 20120116
  Receipt Date: 20120109
  Transmission Date: 20120608
  Serious: Yes (Death)
  Sender: FDA-Public Use
  Company Number: PHHY2012DE002273

PATIENT
  Sex: Male
  Weight: 83 kg

DRUGS (2)
  1. BICALUTAMIDE [Concomitant]
     Dosage: UNK UKN, UNK
     Dates: start: 20110429
  2. ZOMETA [Suspect]
     Indication: BONE DISORDER
     Dosage: 4 MG, UNK
     Route: 042
     Dates: start: 20110427

REACTIONS (1)
  - DEATH [None]
